FAERS Safety Report 5513465-9 (Version None)
Quarter: 2007Q4

REPORT INFORMATION
  Report Type: 
  Country: None (occurrence: None)
  Receive Date: 20071112
  Receipt Date: 20071031
  Transmission Date: 20080405
  Serious: Yes (Other)
  Sender: FDA-Public Use
  Company Number: US-PFIZER INC-2007091943

PATIENT
  Sex: Male
  Weight: 140.6 kg

DRUGS (14)
  1. AZULFIDINE [Suspect]
     Indication: GASTROINTESTINAL DISORDER
  2. FOLIC ACID [Concomitant]
  3. CORTISONE ACETATE TAB [Concomitant]
  4. LASIX [Concomitant]
  5. ATENOLOL [Concomitant]
  6. LEXAPRO [Concomitant]
  7. ATACAND [Concomitant]
  8. HYDROXYZINE [Concomitant]
  9. CYMBALTA [Concomitant]
  10. BACLOFEN [Concomitant]
  11. SYNTHROID [Concomitant]
  12. METHADONE HCL [Concomitant]
  13. KEPPRA [Concomitant]
  14. NEXIUM [Concomitant]

REACTIONS (5)
  - INTENTIONAL DRUG MISUSE [None]
  - PHARYNGEAL OEDEMA [None]
  - SWOLLEN TONGUE [None]
  - TONGUE DISORDER [None]
  - URTICARIA [None]
